FAERS Safety Report 5914510-9 (Version None)
Quarter: 2008Q4

REPORT INFORMATION
  Report Type: 
  Country: None (occurrence: None)
  Receive Date: 20081008
  Receipt Date: 20080922
  Transmission Date: 20090506
  Serious: Yes (Death)
  Sender: FDA-Public Use
  Company Number: A-CH2008-22204

PATIENT
  Age: 3 Year
  Sex: Male

DRUGS (2)
  1. ZAVESCA [Suspect]
     Indication: NIEMANN-PICK DISEASE
     Dosage: 100 MG, TID, ORAL
     Route: 048
     Dates: start: 20070801, end: 20070926
  2. DIAZEPAM [Concomitant]

REACTIONS (4)
  - ACUTE RESPIRATORY FAILURE [None]
  - DISEASE PROGRESSION [None]
  - FEBRILE CONVULSION [None]
  - NIEMANN-PICK DISEASE [None]
